FAERS Safety Report 5609398-X (Version None)
Quarter: 2008Q1

REPORT INFORMATION
  Report Type: 
  Country: None (occurrence: None)
  Receive Date: 20080131
  Receipt Date: 20080123
  Transmission Date: 20080703
  Serious: Yes (Hospitalization)
  Sender: FDA-Public Use
  Company Number: HR-JNJFOC-20080106034

PATIENT
  Sex: Female
  Weight: 65 kg

DRUGS (1)
  1. RISPOLEPT CONSTA [Suspect]
     Indication: PSYCHOTIC DISORDER
     Route: 030

REACTIONS (3)
  - DRUG EXPOSURE DURING PREGNANCY [None]
  - PERITONITIS [None]
  - RED BLOOD CELL COUNT DECREASED [None]
